FAERS Safety Report 16509158 (Version 37)
Quarter: 2023Q1

REPORT INFORMATION
  Report Type: Spontaneous
  Country: GB (occurrence: GB)
  Receive Date: 20190702
  Receipt Date: 20230301
  Transmission Date: 20230418
  Serious: Yes (Death, Hospitalization, Other)
  Sender: FDA-Public Use
  Company Number: GB-AMGEN-GBRNI2018173425

PATIENT
  Age: 58 Year
  Sex: Female

DRUGS (132)
  1. TRASTUZUMAB [Suspect]
     Active Substance: TRASTUZUMAB
     Indication: Breast cancer metastatic
     Dosage: 350 MILLIGRAM
     Route: 042
     Dates: start: 20150601, end: 20150601
  2. TRASTUZUMAB [Suspect]
     Active Substance: TRASTUZUMAB
     Indication: HER2 positive breast cancer
     Dosage: 300 MILLIGRAM, Q3WK
     Route: 042
     Dates: start: 20150601, end: 20151101
  3. TRASTUZUMAB [Suspect]
     Active Substance: TRASTUZUMAB
     Dosage: 300 MILLIGRAM, Q3WK
     Route: 042
     Dates: start: 20150629, end: 20151102
  4. TRASTUZUMAB [Suspect]
     Active Substance: TRASTUZUMAB
     Dosage: 172 MILLIGRAM, Q3WK
     Route: 042
     Dates: start: 20150629, end: 20151102
  5. TRASTUZUMAB [Suspect]
     Active Substance: TRASTUZUMAB
     Dosage: 172 MILLIGRAM, Q3WK
     Route: 042
     Dates: start: 20151201, end: 20151221
  6. TRASTUZUMAB [Suspect]
     Active Substance: TRASTUZUMAB
     Dosage: 140 MILLIGRAM, Q3WK
     Route: 042
     Dates: start: 20151201, end: 20151221
  7. TRASTUZUMAB [Suspect]
     Active Substance: TRASTUZUMAB
     Dosage: 140 MILLIGRAM, Q2WK
     Route: 042
     Dates: start: 20151201, end: 20160215
  8. TRASTUZUMAB [Suspect]
     Active Substance: TRASTUZUMAB
     Dosage: 140 MILLIGRAM, Q3WK
     Route: 042
     Dates: start: 20151201, end: 20160215
  9. TRASTUZUMAB [Suspect]
     Active Substance: TRASTUZUMAB
     Dosage: 140 MILLIGRAM, Q3WK
     Route: 042
     Dates: start: 20160215, end: 20160215
  10. TRASTUZUMAB [Suspect]
     Active Substance: TRASTUZUMAB
     Dosage: 1 DOSAGE FORM, Q3WK
     Route: 042
     Dates: start: 20180608
  11. TRASTUZUMAB [Suspect]
     Active Substance: TRASTUZUMAB
     Dosage: UNK UNK, Q3WK, DOSE REDUCED, 230
     Route: 042
  12. TRASTUZUMAB [Suspect]
     Active Substance: TRASTUZUMAB
     Dosage: 300 MILLIGRAM, Q3WK
     Route: 042
  13. TRASTUZUMAB [Suspect]
     Active Substance: TRASTUZUMAB
     Dosage: 1 DOSAGE FORM, Q3WK
     Route: 042
  14. TRASTUZUMAB [Suspect]
     Active Substance: TRASTUZUMAB
     Dosage: 140 MILLIGRAM, Q3WK
     Route: 042
  15. TRASTUZUMAB [Suspect]
     Active Substance: TRASTUZUMAB
     Dosage: 140 MILLIGRAM, Q3WK, LODING DOSE
     Route: 042
     Dates: start: 20150601, end: 20150601
  16. TRASTUZUMAB [Suspect]
     Active Substance: TRASTUZUMAB
     Dosage: 140 MILLIGRAM, Q3WK
     Route: 042
  17. TRASTUZUMAB [Suspect]
     Active Substance: TRASTUZUMAB
     Dosage: 300 MILLIGRAM, Q3WK
     Route: 040
     Dates: start: 20151102
  18. TRASTUZUMAB [Suspect]
     Active Substance: TRASTUZUMAB
     Dosage: 300 MILLIGRAM, Q3WK
     Route: 040
     Dates: start: 20150629, end: 20150629
  19. DOCETAXEL [Suspect]
     Active Substance: DOCETAXEL
     Indication: Breast cancer metastatic
     Dosage: 108 MILLIGRAM, Q3WK
     Route: 042
     Dates: start: 20150602, end: 20150602
  20. DOCETAXEL [Suspect]
     Active Substance: DOCETAXEL
     Indication: HER2 positive breast cancer
     Dosage: 80 MILLIGRAM, Q3WK
     Route: 042
     Dates: start: 20150629, end: 20150720
  21. DOCETAXEL [Suspect]
     Active Substance: DOCETAXEL
     Dosage: 86 MILLIGRAM, Q3WK
     Route: 042
     Dates: start: 20150629, end: 20150720
  22. DOCETAXEL [Suspect]
     Active Substance: DOCETAXEL
     Dosage: 108 MILLIGRAM, Q3WK
     Route: 042
     Dates: start: 20150629, end: 20150720
  23. DOCETAXEL [Suspect]
     Active Substance: DOCETAXEL
     Dosage: 108 MILLIGRAM, Q3WK
     Route: 042
  24. DOCETAXEL [Suspect]
     Active Substance: DOCETAXEL
     Dosage: 80 MILLIGRAM, Q3WK
     Route: 042
     Dates: start: 20150602, end: 20150602
  25. DOCETAXEL [Suspect]
     Active Substance: DOCETAXEL
     Dosage: 256 MILLIGRAM
     Route: 042
     Dates: start: 20150629
  26. VINORELBINE [Suspect]
     Active Substance: VINORELBINE TARTRATE
     Indication: HER2 positive breast cancer
     Dosage: 60 MILLIGRAM
     Route: 048
  27. VINORELBINE [Suspect]
     Active Substance: VINORELBINE TARTRATE
     Indication: Breast cancer metastatic
     Dosage: 60 MILLIGRAM
     Route: 048
     Dates: start: 20180503, end: 20180508
  28. VINORELBINE [Suspect]
     Active Substance: VINORELBINE TARTRATE
     Dosage: 60 MILLIGRAM
     Route: 048
     Dates: start: 20180503, end: 20180608
  29. VINORELBINE [Suspect]
     Active Substance: VINORELBINE TARTRATE
     Dosage: 60 MILLIGRAM
     Route: 048
     Dates: start: 20180530, end: 20180608
  30. VINORELBINE [Suspect]
     Active Substance: VINORELBINE TARTRATE
     Dosage: 60 MILLIGRAM
     Route: 048
     Dates: start: 20180608, end: 20180810
  31. VINORELBINE [Suspect]
     Active Substance: VINORELBINE TARTRATE
     Dosage: 60 MILLIGRAM
     Route: 048
     Dates: start: 20180810, end: 20180810
  32. ADO-TRASTUZUMAB EMTANSINE [Suspect]
     Active Substance: ADO-TRASTUZUMAB EMTANSINE
     Indication: HER2 positive breast cancer
     Dosage: 172 MILLIGRAM, Q3WK
     Route: 041
     Dates: start: 20151201, end: 20151201
  33. ADO-TRASTUZUMAB EMTANSINE [Suspect]
     Active Substance: ADO-TRASTUZUMAB EMTANSINE
     Indication: Breast cancer metastatic
     Dosage: 172 MILLIGRAM, Q3WK
     Route: 042
     Dates: start: 20151201, end: 20160215
  34. ADO-TRASTUZUMAB EMTANSINE [Suspect]
     Active Substance: ADO-TRASTUZUMAB EMTANSINE
     Dosage: 172 MILLIGRAM, Q3WK
     Route: 041
     Dates: start: 20151201, end: 20151221
  35. ADO-TRASTUZUMAB EMTANSINE [Suspect]
     Active Substance: ADO-TRASTUZUMAB EMTANSINE
     Dosage: 140 MILLIGRAM, Q2WK
     Route: 042
     Dates: start: 20151201, end: 20160215
  36. ADO-TRASTUZUMAB EMTANSINE [Suspect]
     Active Substance: ADO-TRASTUZUMAB EMTANSINE
     Dosage: 140 MILLIGRAM, Q3WK
     Route: 042
     Dates: start: 20151201, end: 20160215
  37. ADO-TRASTUZUMAB EMTANSINE [Suspect]
     Active Substance: ADO-TRASTUZUMAB EMTANSINE
     Dosage: 140 MILLIGRAM, Q3WK
     Route: 042
     Dates: start: 20160215, end: 20160215
  38. ADO-TRASTUZUMAB EMTANSINE [Suspect]
     Active Substance: ADO-TRASTUZUMAB EMTANSINE
     Dosage: 140 MILLIGRAM, Q3WK
     Route: 042
  39. ADO-TRASTUZUMAB EMTANSINE [Suspect]
     Active Substance: ADO-TRASTUZUMAB EMTANSINE
     Dosage: 172 MILLIGRAM, Q3WK
     Route: 042
     Dates: start: 20151201
  40. ERIBULIN [Suspect]
     Active Substance: ERIBULIN
     Indication: Breast cancer metastatic
     Dosage: 1.5 MILLIGRAM, Q3WK
     Route: 042
     Dates: start: 20160411
  41. ERIBULIN [Suspect]
     Active Substance: ERIBULIN
     Indication: HER2 positive breast cancer
     Dosage: 1.5 MILLIGRAM, Q3WK
     Route: 042
     Dates: start: 20160411, end: 20160411
  42. ERIBULIN [Suspect]
     Active Substance: ERIBULIN
     Dosage: 1.5 MILLIGRAM, Q3WK
     Route: 042
     Dates: start: 20160411, end: 20160624
  43. ERIBULIN [Suspect]
     Active Substance: ERIBULIN
     Dosage: 1.5 MILLIGRAM, Q3WK
     Route: 042
     Dates: start: 20160624, end: 20160624
  44. ERIBULIN [Suspect]
     Active Substance: ERIBULIN
     Dosage: 1.5 MILLIGRAM, Q3WK
     Route: 042
  45. ERIBULIN [Suspect]
     Active Substance: ERIBULIN
     Dosage: 1.5 MILLIGRAM
     Route: 042
  46. ERIBULIN [Suspect]
     Active Substance: ERIBULIN
     Dosage: 1.5 MILLIGRAM, Q2WK
     Route: 042
  47. CAPECITABINE [Suspect]
     Active Substance: CAPECITABINE
     Indication: Breast cancer metastatic
     Dosage: 1500 MILLIGRAM, QD
     Route: 048
     Dates: start: 20170210, end: 20170728
  48. CAPECITABINE [Suspect]
     Active Substance: CAPECITABINE
     Indication: HER2 positive breast cancer
     Dosage: 3000 MILLIGRAM, BID
     Route: 048
     Dates: start: 20170210, end: 20170728
  49. CAPECITABINE [Suspect]
     Active Substance: CAPECITABINE
     Dosage: 3000 MILLIGRAM, QD
     Route: 048
     Dates: start: 20170210
  50. CAPECITABINE [Suspect]
     Active Substance: CAPECITABINE
     Dosage: 1500 MILLIGRAM, BID (FREQUENCY: 0.5 DAY)
     Route: 048
  51. CAPECITABINE [Suspect]
     Active Substance: CAPECITABINE
     Dosage: 3000 MILLIGRAM, QD
     Route: 048
  52. CAPECITABINE [Suspect]
     Active Substance: CAPECITABINE
     Dosage: 12000 MILLIGRAM, QD
     Route: 048
     Dates: start: 20170210, end: 20170728
  53. CAPECITABINE [Suspect]
     Active Substance: CAPECITABINE
     Dosage: 1500 MILLIGRAM
     Route: 048
  54. CAPECITABINE [Suspect]
     Active Substance: CAPECITABINE
     Dosage: 6000 MILLIGRAM
     Route: 048
  55. CAPECITABINE [Suspect]
     Active Substance: CAPECITABINE
     Dosage: 1500 MILLIGRAM(0.5 DAY)3000MG ONCE DAILY
     Dates: start: 20170210, end: 20170728
  56. CAPECITABINE [Suspect]
     Active Substance: CAPECITABINE
     Dosage: 1500 MILLIGRAM(0.5 DAY)3000MG ONCE DAILY
  57. CAPECITABINE [Suspect]
     Active Substance: CAPECITABINE
     Dosage: 6000 MILLIGRAM, QD3000 MG BID
     Dates: start: 20170210, end: 20170728
  58. CAPECITABINE [Suspect]
     Active Substance: CAPECITABINE
     Dosage: 1500 MILLIGRAM
  59. CAPECITABINE [Suspect]
     Active Substance: CAPECITABINE
     Dosage: 1500 MILLIGRAM, QD
     Dates: start: 20170210, end: 20170728
  60. CAPECITABINE [Suspect]
     Active Substance: CAPECITABINE
     Dosage: 3000 MILLIGRAM
     Dates: start: 20170210, end: 20170728
  61. CAPECITABINE [Suspect]
     Active Substance: CAPECITABINE
     Dosage: 3000 MILLIGRAM, QD
  62. CAPECITABINE [Suspect]
     Active Substance: CAPECITABINE
     Dosage: 3000 MILLIGRAM, QD
     Dates: start: 20170210
  63. PERTUZUMAB [Suspect]
     Active Substance: PERTUZUMAB
     Indication: HER2 positive breast cancer
     Dosage: 420 MILLIGRAM, Q3WK
     Route: 041
     Dates: start: 20150622, end: 20150622
  64. PERTUZUMAB [Suspect]
     Active Substance: PERTUZUMAB
     Indication: Breast cancer metastatic
     Dosage: 420 MILLIGRAM, Q3WK THARGETED THERAPY
     Route: 042
     Dates: start: 20150622, end: 20151102
  65. PERTUZUMAB [Suspect]
     Active Substance: PERTUZUMAB
     Dosage: 840 MILLIGRAM, Q3WK
     Route: 042
  66. PERTUZUMAB [Suspect]
     Active Substance: PERTUZUMAB
     Dosage: 1 DOSAGE FORM, Q3WK
     Route: 042
  67. PERTUZUMAB [Suspect]
     Active Substance: PERTUZUMAB
     Dosage: 420 MILLIGRAM, Q3WK
     Route: 042
     Dates: start: 20150622, end: 20151102
  68. PERTUZUMAB [Suspect]
     Active Substance: PERTUZUMAB
     Dosage: 840 MILLIGRAM, Q3WK
     Route: 042
  69. PERTUZUMAB [Suspect]
     Active Substance: PERTUZUMAB
     Dosage: 840 MILLIGRAM, Q2WK
     Route: 042
  70. PERTUZUMAB [Suspect]
     Active Substance: PERTUZUMAB
     Dosage: 420 MILLIGRAM, Q3WK
     Route: 041
  71. ERIBULIN [Suspect]
     Active Substance: ERIBULIN
     Indication: HER2 positive breast cancer
     Dosage: 1.5 MILLIGRAM, Q3WK
     Route: 042
     Dates: start: 20160411, end: 20160624
  72. ERIBULIN [Suspect]
     Active Substance: ERIBULIN
     Dosage: 1.5 MILLIGRAM, Q3WK
     Route: 042
  73. NERATINIB [Suspect]
     Active Substance: NERATINIB
     Indication: HER2 positive breast cancer
     Dosage: 40 MILLIGRAM, QD
     Route: 048
     Dates: start: 20170901, end: 20180314
  74. NERATINIB [Suspect]
     Active Substance: NERATINIB
     Indication: Breast cancer metastatic
     Dosage: 240 MILLIGRAM, QD
     Route: 048
     Dates: start: 20170901, end: 20180216
  75. NERATINIB [Suspect]
     Active Substance: NERATINIB
     Dosage: 240 MILLIGRAM, QD
     Route: 048
     Dates: start: 20170901, end: 20180314
  76. NERATINIB [Suspect]
     Active Substance: NERATINIB
     Dosage: 240 MILLIGRAM, QD
     Route: 048
     Dates: start: 20180223, end: 20180420
  77. NERATINIB [Suspect]
     Active Substance: NERATINIB
     Dosage: 240 MILLIGRAM, QD
     Route: 065
  78. NERATINIB [Suspect]
     Active Substance: NERATINIB
     Dosage: 40 MILLIGRAM, QD
     Route: 048
  79. NERATINIB [Suspect]
     Active Substance: NERATINIB
     Dosage: 40 MILLIGRAM, QD
     Route: 048
  80. NERATINIB [Suspect]
     Active Substance: NERATINIB
     Dosage: 240 MILLIGRAM, QD
     Route: 048
     Dates: start: 20170901, end: 20180314
  81. NERATINIB [Suspect]
     Active Substance: NERATINIB
     Dosage: 40 MILLIGRAM, QD
     Dates: start: 20170901, end: 20180314
  82. NERATINIB [Suspect]
     Active Substance: NERATINIB
     Dosage: 240 MILLIGRAM, QD
     Dates: start: 20180223, end: 20180402
  83. VINORELBINE TARTRATE [Suspect]
     Active Substance: VINORELBINE TARTRATE
     Indication: HER2 positive breast cancer
     Dosage: 60 MILLIGRAM
     Route: 048
     Dates: start: 20180503, end: 20180608
  84. VINORELBINE TARTRATE [Suspect]
     Active Substance: VINORELBINE TARTRATE
     Dosage: 60 MILLIGRAM
     Route: 048
     Dates: start: 20180608, end: 20180810
  85. VINORELBINE TARTRATE [Suspect]
     Active Substance: VINORELBINE TARTRATE
     Dosage: 60 MILLIGRAM
     Route: 048
  86. VINORELBINE TARTRATE [Suspect]
     Active Substance: VINORELBINE TARTRATE
     Dosage: 60 MILLIGRAM
  87. FILGRASTIM [Concomitant]
     Active Substance: FILGRASTIM
     Indication: Product used for unknown indication
     Dosage: 300 MICROGRAM, QD (EVERY DAY FOR 3 DAYS STARTING ON
     Route: 058
     Dates: start: 20150725, end: 20150730
  88. FILGRASTIM [Concomitant]
     Active Substance: FILGRASTIM
     Dosage: 300 MICROGRAM, QD EVERY DAY FOR 3 DAYS STARTING ON DAYS 3 AND 11)
     Route: 058
     Dates: start: 20160421, end: 20160712
  89. MUPIROCIN [Concomitant]
     Active Substance: MUPIROCIN
     Indication: Prophylaxis
     Dosage: 2 PERCENT, QD
     Route: 061
     Dates: start: 20160620, end: 20160624
  90. MUPIROCIN [Concomitant]
     Active Substance: MUPIROCIN
     Dosage: 6 PERCENT, QD
     Route: 061
     Dates: start: 20160620, end: 20160624
  91. MUPIROCIN [Concomitant]
     Active Substance: MUPIROCIN
     Dosage: 2 PERCENT, EVERY 0.3DAY
     Route: 061
     Dates: start: 20160620, end: 20160624
  92. MEROPENEM [Concomitant]
     Active Substance: MEROPENEM
     Indication: Lower respiratory tract infection
     Dosage: UNK
     Route: 042
     Dates: start: 20170215, end: 20170221
  93. POTASSIUM BICARBONATE\POTASSIUM CHLORIDE [Concomitant]
     Active Substance: POTASSIUM BICARBONATE\POTASSIUM CHLORIDE
     Indication: Nutritional supplementation
     Dosage: 2 DOSAGE FORM(2 TABLETS EVERY DAY), QD
     Route: 048
     Dates: start: 20150828, end: 20150830
  94. POTASSIUM BICARBONATE\POTASSIUM CHLORIDE [Concomitant]
     Active Substance: POTASSIUM BICARBONATE\POTASSIUM CHLORIDE
     Dosage: 1 DOSAGE FORM, QD(2 TABLETS EVERY)
     Route: 048
     Dates: start: 20150828, end: 20150830
  95. POTASSIUM BICARBONATE\POTASSIUM CHLORIDE [Concomitant]
     Active Substance: POTASSIUM BICARBONATE\POTASSIUM CHLORIDE
     Dosage: 2 DOSAGE FORM, BID
     Route: 048
     Dates: start: 20150828, end: 20150830
  96. POTASSIUM BICARBONATE\POTASSIUM CHLORIDE [Concomitant]
     Active Substance: POTASSIUM BICARBONATE\POTASSIUM CHLORIDE
     Dosage: 2 DOSAGE FORM(2 TABLETS EVERY DAY), QD
     Dates: start: 20150828, end: 20150830
  97. DOMPERIDONE [Concomitant]
     Active Substance: DOMPERIDONE
     Dosage: 10 MILLIGRAM, QD
     Route: 048
     Dates: start: 20160406, end: 20160421
  98. DOMPERIDONE [Concomitant]
     Active Substance: DOMPERIDONE
     Dosage: 30 MILLIGRAM, QD
     Route: 048
     Dates: start: 20160406, end: 20160421
  99. DOMPERIDONE [Concomitant]
     Active Substance: DOMPERIDONE
     Dosage: 30 MILLIGRAM, QD
     Route: 048
     Dates: start: 20160406, end: 20160421
  100. DOMPERIDONE [Concomitant]
     Active Substance: DOMPERIDONE
     Dosage: 10 MILLIGRAM,EVERY 0.33 DAY
     Route: 048
     Dates: start: 20160406, end: 20160421
  101. DOMPERIDONE [Concomitant]
     Active Substance: DOMPERIDONE
     Dosage: 10 MILLIGRAM, QD
     Dates: start: 20160406, end: 20160421
  102. DOMPERIDONE [Concomitant]
     Active Substance: DOMPERIDONE
     Dosage: CUMULATIVE DOSE 7470.0MG
     Dates: start: 20160406, end: 20160421
  103. CIPROFLOXACIN [Concomitant]
     Active Substance: CIPROFLOXACIN
     Dosage: 500 MILLIGRAM, QD
     Route: 048
     Dates: start: 20151218, end: 20151225
  104. CIPROFLOXACIN [Concomitant]
     Active Substance: CIPROFLOXACIN
     Dosage: 1000 MILLIGRAM, QD
     Route: 048
     Dates: start: 20151218, end: 20151225
  105. CIPROFLOXACIN [Concomitant]
     Active Substance: CIPROFLOXACIN
     Dosage: 1000 MILLIGRAM, QD
     Route: 048
     Dates: start: 20151218, end: 20151225
  106. CIPROFLOXACIN [Concomitant]
     Active Substance: CIPROFLOXACIN
     Dosage: 500 MILLIGRAM (0.5 DAY)
     Route: 048
     Dates: start: 20151218, end: 20151225
  107. CIPROFLOXACIN [Concomitant]
     Active Substance: CIPROFLOXACIN
     Dosage: 1000 MILLIGRAM, QD
     Dates: start: 20151218, end: 20151225
  108. GENTAMICIN [Concomitant]
     Active Substance: GENTAMICIN
     Indication: Lower respiratory tract infection
     Dosage: UNK
     Route: 042
     Dates: start: 20170213, end: 201702
  109. LOPERAMIDE [Concomitant]
     Active Substance: LOPERAMIDE
     Indication: Diarrhoea
     Dosage: 2 MILLIGRAM, AS NECESSARY
     Route: 048
     Dates: start: 20170901, end: 20171124
  110. LOPERAMIDE [Concomitant]
     Active Substance: LOPERAMIDE
     Dosage: UNK MILLIGRAM, AS NECESSARY
     Dates: start: 20170901, end: 20171124
  111. FOLIC ACID [Concomitant]
     Active Substance: FOLIC ACID
     Indication: Blood folate decreased
     Dosage: 5 MILLIGRAM, QD
     Route: 048
     Dates: start: 20150828, end: 201708
  112. FOLIC ACID [Concomitant]
     Active Substance: FOLIC ACID
     Dosage: 5 MILLIGRAM, QD
     Dates: start: 20150828, end: 201708
  113. AMOXICILLIN\CLAVULANATE POTASSIUM [Concomitant]
     Active Substance: AMOXICILLIN\CLAVULANATE POTASSIUM
     Indication: Lower respiratory tract infection
     Dosage: 625 MILLIGRAM, QD
     Route: 048
     Dates: start: 20170222, end: 20170228
  114. AMOXICILLIN\CLAVULANATE POTASSIUM [Concomitant]
     Active Substance: AMOXICILLIN\CLAVULANATE POTASSIUM
     Dosage: 1875 MILLIGRAM, QD
     Route: 048
     Dates: start: 20170222, end: 20170228
  115. AMOXICILLIN\CLAVULANATE POTASSIUM [Concomitant]
     Active Substance: AMOXICILLIN\CLAVULANATE POTASSIUM
     Dosage: 625 MILLIGRAM 0.33 DAYS
     Route: 048
     Dates: start: 20170222, end: 20170228
  116. AMOXICILLIN\CLAVULANATE POTASSIUM [Concomitant]
     Active Substance: AMOXICILLIN\CLAVULANATE POTASSIUM
     Dosage: 625 MILLIGRAM, QD
     Dates: start: 20170222, end: 20170228
  117. AMLODIPINE [Concomitant]
     Active Substance: AMLODIPINE BESYLATE
     Indication: Product used for unknown indication
     Dosage: 10 MILLIGRAM
     Route: 048
  118. AMLODIPINE [Concomitant]
     Active Substance: AMLODIPINE BESYLATE
     Dosage: 10 MILLIGRAM
  119. PIPERACILLIN SODIUM\TAZOBACTAM SODIUM [Concomitant]
     Active Substance: PIPERACILLIN SODIUM\TAZOBACTAM SODIUM
     Indication: Lower respiratory tract infection
     Dosage: UNK
     Route: 042
     Dates: start: 20170213, end: 20170215
  120. HUMAN RED BLOOD CELL [Concomitant]
     Active Substance: HUMAN RED BLOOD CELL
     Dosage: 2 UNIT, QD
     Route: 042
     Dates: start: 20160702, end: 20160702
  121. HUMAN RED BLOOD CELL [Concomitant]
     Active Substance: HUMAN RED BLOOD CELL
     Dosage: 2 UNIT, QD
     Route: 042
     Dates: start: 20180526, end: 20180526
  122. GRANULOCYTE COLONY-STIMULATING FACTOR NOS [Concomitant]
     Active Substance: GRANULOCYTE COLONY-STIMULATING FACTOR NOS
     Dosage: 300 MICROGRAM (QD FOR 3 DAYS STARTING ON DAY 3 AND 11) RECEIVED 300 MCG FROM 25-JUL-2015
     Route: 058
     Dates: start: 20150725, end: 20150730
  123. GRANULOCYTE COLONY-STIMULATING FACTOR NOS [Concomitant]
     Active Substance: GRANULOCYTE COLONY-STIMULATING FACTOR NOS
     Dosage: 300 MICROGRAM, QD EVERY DAY FOR 3 DAYS STARTING ON DAYS 3 AND 11
     Route: 058
     Dates: start: 20160421, end: 20160721
  124. CLAVULANATE POTASSIUM [Concomitant]
     Active Substance: CLAVULANATE POTASSIUM
     Indication: Lower respiratory tract infection
     Dosage: 625 MILLIGRAM, QD
     Route: 048
     Dates: start: 20170222, end: 20170228
  125. CLAVULANATE POTASSIUM [Concomitant]
     Active Substance: CLAVULANATE POTASSIUM
     Dosage: 1875 MILLIGRAM, QD
     Route: 048
     Dates: start: 20170222, end: 20170228
  126. PIPERACILLIN AND TAZOBACTAM [Concomitant]
     Active Substance: PIPERACILLIN SODIUM\TAZOBACTAM SODIUM
     Indication: Lower respiratory tract infection
     Dosage: UNK UNK, BID
     Route: 042
     Dates: start: 20170213, end: 20170215
  127. POTASSIUM [Concomitant]
     Active Substance: POTASSIUM
     Indication: Nutritional supplementation
     Dosage: 2 TABLETS, QD
     Route: 048
     Dates: start: 20150828, end: 20150830
  128. AMOXICILLIN [Concomitant]
     Active Substance: AMOXICILLIN
     Indication: Lower respiratory tract infection
     Dosage: 625 MILLIGRAM, QD
     Route: 048
     Dates: start: 20170222, end: 20170228
  129. HUMAN RED BLOOD CELL [Concomitant]
     Active Substance: HUMAN RED BLOOD CELL
     Dosage: UNK
     Dates: start: 20180526, end: 20180526
  130. HUMAN RED BLOOD CELL [Concomitant]
     Active Substance: HUMAN RED BLOOD CELL
     Indication: Product used for unknown indication
     Dosage: 2 DOSAGE FORM, QD
     Dates: start: 20160702, end: 20160702
  131. HUMAN RED BLOOD CELL [Concomitant]
     Active Substance: HUMAN RED BLOOD CELL
     Dosage: 2 UNIT
     Dates: start: 20180526, end: 20180526
  132. HUMAN RED BLOOD CELL [Concomitant]
     Active Substance: HUMAN RED BLOOD CELL
     Dosage: 2 UNIT
     Dates: start: 20180626, end: 20180626

REACTIONS (10)
  - Disease progression [Fatal]
  - Hypoaesthesia [Fatal]
  - Alopecia [Fatal]
  - Intentional product misuse [Fatal]
  - Off label use [Fatal]
  - Dyspepsia [Fatal]
  - Diarrhoea [Fatal]
  - Product use issue [Fatal]
  - Decreased appetite [Fatal]
  - Fatigue [Fatal]

NARRATIVE: CASE EVENT DATE: 20180525
